FAERS Safety Report 21362901 (Version 1)
Quarter: 2022Q3

REPORT INFORMATION
  Report Type: Spontaneous
  Country: US (occurrence: US)
  Receive Date: 20220922
  Receipt Date: 20220922
  Transmission Date: 20221027
  Serious: Yes (Other)
  Sender: FDA-Public Use
  Company Number: US-SA-SAC20220915001360

PATIENT
  Age: 63 Year
  Sex: Female

DRUGS (11)
  1. AUBAGIO [Suspect]
     Active Substance: TERIFLUNOMIDE
     Indication: Multiple sclerosis
     Dosage: 14 MG, QD
     Route: 048
     Dates: start: 20220616
  2. HYDROCODONE [Concomitant]
     Active Substance: HYDROCODONE
  3. LOMODIUM [Concomitant]
  4. CYCLOBENZAPRINE [Concomitant]
     Active Substance: CYCLOBENZAPRINE
  5. VITAMIN D NOS [Concomitant]
     Active Substance: VITAMIN D NOS
  6. AMBIEN [Concomitant]
     Active Substance: ZOLPIDEM TARTRATE
  7. CALCIUM [Concomitant]
     Active Substance: CALCIUM
  8. VITAMIN B12 [Concomitant]
     Active Substance: CYANOCOBALAMIN
  9. ADDERALL [Concomitant]
     Active Substance: AMPHETAMINE ASPARTATE\AMPHETAMINE SULFATE\DEXTROAMPHETAMINE SACCHARATE\DEXTROAMPHETAMINE SULFATE
  10. VALSARTAN [Concomitant]
     Active Substance: VALSARTAN
     Route: 065
  11. FISH OIL [Concomitant]
     Active Substance: FISH OIL
     Route: 065

REACTIONS (8)
  - Upper gastrointestinal haemorrhage [Not Recovered/Not Resolved]
  - Raynaud^s phenomenon [Not Recovered/Not Resolved]
  - Cyanosis [Not Recovered/Not Resolved]
  - Abdominal pain [Not Recovered/Not Resolved]
  - Migraine [Not Recovered/Not Resolved]
  - Rash [Recovering/Resolving]
  - Alopecia [Not Recovered/Not Resolved]
  - Nausea [Not Recovered/Not Resolved]

NARRATIVE: CASE EVENT DATE: 20220914
